FAERS Safety Report 19943270 (Version 1)
Quarter: 2021Q4

REPORT INFORMATION
  Report Type: Spontaneous
  Country: US (occurrence: US)
  Receive Date: 20211011
  Receipt Date: 20211011
  Transmission Date: 20220303
  Serious: No
  Sender: FDA-Public Use
  Company Number: US-INTRA-CELLULAR THERAPIES, INC.-2021ICT00320

PATIENT
  Sex: Female

DRUGS (2)
  1. CAPLYTA [Suspect]
     Active Substance: LUMATEPERONE
     Dosage: 42 MG, 1X/DAY WITH FOOD
     Dates: start: 20201117
  2. CAPLYTA [Suspect]
     Active Substance: LUMATEPERONE
     Dosage: CUTTING MEDICATION IN HALVE

REACTIONS (2)
  - Wrong technique in product usage process [Not Recovered/Not Resolved]
  - Sedation [Unknown]
